FAERS Safety Report 8000357-9 (Version None)
Quarter: 2011Q4

REPORT INFORMATION
  Report Type: 
  Country: None (occurrence: None)
  Receive Date: 20111216
  Receipt Date: 20111206
  Transmission Date: 20120403
  Serious: Yes (Hospitalization, Other)
  Sender: FDA-Public Use
  Company Number: 2011SP056618

PATIENT
  Age: 67 Year
  Sex: Male
  Weight: 68 kg

DRUGS (4)
  1. COMTREX /00959901/ [Concomitant]
  2. RAMIPRIL [Concomitant]
  3. TRAZODONE HCL [Concomitant]
  4. PEG-INTRON [Suspect]
     Indication: HEPATITIS C
     Dosage: 100 MCG;QW;SC
     Route: 058
     Dates: start: 20100110, end: 20101215

REACTIONS (2)
  - LYMPHOMA [None]
  - NEOPLASM RECURRENCE [None]
